FAERS Safety Report 7114128-9 (Version None)
Quarter: 2010Q4

REPORT INFORMATION
  Report Type: 
  Country: None (occurrence: None)
  Receive Date: 20101119
  Receipt Date: 20101116
  Transmission Date: 20110411
  Serious: Yes (Life-Threatening, Hospitalization)
  Sender: FDA-Public Use
  Company Number: US-US-EMD SERONO, INC.-231942J09USA

PATIENT
  Sex: Female

DRUGS (8)
  1. REBIF [Suspect]
     Indication: MULTIPLE SCLEROSIS
     Route: 058
     Dates: start: 20080618, end: 20090909
  2. REBIF [Suspect]
     Route: 058
     Dates: start: 20090923, end: 20090101
  3. REBIF [Suspect]
     Route: 058
     Dates: start: 20090101
  4. ASACOL [Concomitant]
     Indication: COLITIS
     Route: 065
  5. BENTYL [Concomitant]
     Indication: COLITIS
     Route: 065
  6. NEXIUM [Concomitant]
     Route: 065
  7. ADVAIR DISKUS 100/50 [Concomitant]
     Indication: ASTHMA
     Route: 065
  8. PRVENTIL INHALER [Concomitant]
     Indication: ASTHMA
     Route: 055

REACTIONS (3)
  - HIATUS HERNIA [None]
  - NEPHROLITHIASIS [None]
  - PNEUMOTHORAX [None]
